FAERS Safety Report 24899228 (Version 1)
Quarter: 2025Q1

REPORT INFORMATION
  Report Type: Spontaneous
  Country: US (occurrence: US)
  Receive Date: 20250129
  Receipt Date: 20250129
  Transmission Date: 20250409
  Serious: Yes (Other)
  Sender: RANBAXY
  Company Number: US-SUN PHARMACEUTICAL INDUSTRIES LTD-2025R1-490794

PATIENT
  Age: 63 Year
  Sex: Male

DRUGS (2)
  1. METHYLPREDNISOLONE [Suspect]
     Active Substance: METHYLPREDNISOLONE
     Indication: Stevens-Johnson syndrome
     Route: 030
  2. PREDNISONE [Suspect]
     Active Substance: PREDNISONE
     Indication: Stevens-Johnson syndrome
     Route: 065

REACTIONS (2)
  - Disease progression [Unknown]
  - Therapeutic response decreased [Unknown]
